FAERS Safety Report 21839565 (Version 6)
Quarter: 2024Q3

REPORT INFORMATION
  Report Type: Spontaneous
  Country: US (occurrence: US)
  Receive Date: 20230109
  Receipt Date: 20240827
  Transmission Date: 20241017
  Serious: No
  Sender: NOVARTIS
  Company Number: US-002147023-NVSC2023US004007

PATIENT
  Age: 10 Year
  Sex: Female
  Weight: 47.3 kg

DRUGS (2)
  1. ILARIS [Suspect]
     Active Substance: CANAKINUMAB
     Indication: Muckle-Wells syndrome
     Dosage: 150 MG, Q4W
     Route: 058
     Dates: start: 20180914
  2. ILARIS [Suspect]
     Active Substance: CANAKINUMAB
     Dosage: UNK (DOSE: 150, FREQUENCY: 4)
     Route: 058

REACTIONS (5)
  - Hand-foot-and-mouth disease [Recovered/Resolved]
  - Wound [Recovered/Resolved]
  - Anaemia [Not Recovered/Not Resolved]
  - Headache [Not Recovered/Not Resolved]
  - Epistaxis [Not Recovered/Not Resolved]

NARRATIVE: CASE EVENT DATE: 20221228
